FAERS Safety Report 21459118 (Version 2)
Quarter: 2022Q4

REPORT INFORMATION
  Report Type: Spontaneous
  Country: BE (occurrence: BE)
  Receive Date: 20221014
  Receipt Date: 20221104
  Transmission Date: 20230112
  Serious: Yes (Hospitalization, Other)
  Sender: FDA-Public Use
  Company Number: BE-CELGENE-BEL-20211200650

PATIENT
  Age: 86 Year
  Sex: Female
  Weight: 50.80 kg

DRUGS (9)
  1. LENALIDOMIDE [Suspect]
     Active Substance: LENALIDOMIDE
     Indication: Follicular lymphoma
     Dosage: (DAYS 1 TO 21 OF EVERY 28-DAY CYCLE FOR 12 CYCLES
     Route: 048
     Dates: start: 20211022, end: 20211105
  2. LENALIDOMIDE [Suspect]
     Active Substance: LENALIDOMIDE
     Route: 048
     Dates: end: 20211110
  3. LENALIDOMIDE [Suspect]
     Active Substance: LENALIDOMIDE
     Route: 048
     Dates: end: 20211111
  4. LENALIDOMIDE [Suspect]
     Active Substance: LENALIDOMIDE
     Route: 048
     Dates: end: 20211125
  5. TAFASITAMAB-CXIX [Suspect]
     Active Substance: TAFASITAMAB-CXIX
     Indication: Follicular lymphoma
     Dosage: DAYS 1, 8, 15 AND 22 OF CYCLES 1 TO 3 AND DAYS 1 AND 15 OF CYCLES 4 TO 12
     Route: 042
     Dates: start: 20211022, end: 20211105
  6. TAFASITAMAB-CXIX [Suspect]
     Active Substance: TAFASITAMAB-CXIX
     Route: 042
     Dates: end: 20211118
  7. TAFASITAMAB-CXIX [Suspect]
     Active Substance: TAFASITAMAB-CXIX
     Route: 042
     Dates: end: 20211125
  8. RITUXIMAB [Suspect]
     Active Substance: RITUXIMAB
     Indication: Follicular lymphoma
     Dosage: (DAYS 1, 8, 15 AND 22 IN CYCLE 1 AND DAY 1 OF EVERY 28-DAY CYCLE FROM CYCLE 2 TO 5)
     Route: 042
     Dates: start: 20211022, end: 20211105
  9. RITUXIMAB [Suspect]
     Active Substance: RITUXIMAB
     Route: 042
     Dates: end: 20211118

REACTIONS (5)
  - Pyrexia [Not Recovered/Not Resolved]
  - Blastocystis infection [Recovered/Resolved]
  - Pleural effusion [Recovered/Resolved]
  - Condition aggravated [Recovered/Resolved]
  - Pneumonia [Recovered/Resolved]

NARRATIVE: CASE EVENT DATE: 20211106
